FAERS Safety Report 12224358 (Version 1)
Quarter: 2016Q1

REPORT INFORMATION
  Report Type: Spontaneous
  Country: US (occurrence: US)
  Receive Date: 20160331
  Receipt Date: 20160331
  Transmission Date: 20160526
  Serious: No
  Sender: FDA-Public Use
  Company Number: US-HOSPIRA-2953075

PATIENT
  Age: 59 Year
  Sex: Male
  Weight: 110.67 kg

DRUGS (3)
  1. DOCETAXEL SANDOZ [Suspect]
     Active Substance: DOCETAXEL
     Indication: NON-SMALL CELL LUNG CANCER
     Route: 041
     Dates: start: 20150702, end: 20150702
  2. DOCETAXEL HOSPIRA [Suspect]
     Active Substance: DOCETAXEL
     Indication: NON-SMALL CELL LUNG CANCER
     Route: 041
     Dates: start: 20150702, end: 20150702
  3. NORMAL SALINE [Suspect]
     Active Substance: SODIUM CHLORIDE
     Indication: PROPHYLAXIS
     Route: 041

REACTIONS (2)
  - Infusion site streaking [Not Recovered/Not Resolved]
  - Infusion site erythema [Not Recovered/Not Resolved]
